FAERS Safety Report 11106366 (Version 1)
Quarter: 2015Q2

REPORT INFORMATION
  Report Type: Spontaneous
  Country: US (occurrence: None)
  Receive Date: 20150511
  Receipt Date: 20150511
  Transmission Date: 20150821
  Serious: Yes (Disabling)
  Sender: FDA-Public Use
  Company Number: None

PATIENT
  Age: 48 Year
  Sex: Male
  Weight: 89.36 kg

DRUGS (3)
  1. FLUTICASONE PROPIONATE. [Suspect]
     Active Substance: FLUTICASONE PROPIONATE
     Indication: RHINITIS
     Dosage: 1 SPRAY EACH NOSTRIL X 2 A DAY TWICE DAILY NASAL SPRAY
     Route: 045
  2. MULTI-VITAMINS (CALCIUM PANTOTHENATE, FOLIC ACID, VITAMINS NOS) [Concomitant]
     Active Substance: VITAMINS
  3. 81 MG ASPIRIN [Concomitant]

REACTIONS (3)
  - Blindness [None]
  - Nasal congestion [None]
  - Retinal injury [None]

NARRATIVE: CASE EVENT DATE: 20150423
